FAERS Safety Report 4991255-3 (Version None)
Quarter: 2006Q2

REPORT INFORMATION
  Report Type: 
  Country: None (occurrence: None)
  Receive Date: 20060428
  Receipt Date: 20060413
  Transmission Date: 20061013
  Serious: Yes (Other)
  Sender: FDA-Public Use
  Company Number: 2006S1003751

PATIENT
  Age: 30 Year
  Sex: Male

DRUGS (1)
  1. CYSTAGON [Suspect]
     Indication: CYSTINOSIS
     Dosage: ORAL
     Route: 048

REACTIONS (24)
  - ALCOHOLISM [None]
  - ASTERIXIS [None]
  - ATELECTASIS [None]
  - CARDIAC MURMUR [None]
  - COGNITIVE DISORDER [None]
  - DRUG ABUSER [None]
  - DYSPNOEA [None]
  - GYNAECOMASTIA [None]
  - HAEMORRHOIDS [None]
  - HEPATITIS VIRAL [None]
  - HEPATOPULMONARY SYNDROME [None]
  - HYPERSPLENISM [None]
  - NODULAR REGENERATIVE HYPERPLASIA [None]
  - OXYGEN SATURATION DECREASED [None]
  - PANCYTOPENIA [None]
  - PITTING OEDEMA [None]
  - PO2 DECREASED [None]
  - PORTAL HYPERTENSION [None]
  - RECTAL HAEMORRHAGE [None]
  - REFUSAL OF TREATMENT BY PATIENT [None]
  - RENAL FAILURE CHRONIC [None]
  - RENAL TRANSPLANT [None]
  - RESTRICTIVE PULMONARY DISEASE [None]
  - TREATMENT NONCOMPLIANCE [None]
